FAERS Safety Report 19656005 (Version 1)
Quarter: 2021Q3

REPORT INFORMATION
  Report Type: Spontaneous
  Country: US (occurrence: US)
  Receive Date: 20210804
  Receipt Date: 20210804
  Transmission Date: 20211014
  Serious: No
  Sender: FDA-Public Use
  Company Number: US-SA-2021SA252622

PATIENT
  Sex: Female
  Weight: 86.17 kg

DRUGS (11)
  1. DUPIXENT [Suspect]
     Active Substance: DUPILUMAB
     Indication: DERMATITIS ATOPIC
     Dosage: 300 MG, QOW
     Route: 058
  2. METHOTREXATE. [Concomitant]
     Active Substance: METHOTREXATE
  3. SIMVASTATIN. [Concomitant]
     Active Substance: SIMVASTATIN
  4. EUCRISA [Concomitant]
     Active Substance: CRISABOROLE
  5. FISH OIL [Concomitant]
     Active Substance: FISH OIL
  6. TYLENOL [Concomitant]
     Active Substance: ACETAMINOPHEN
  7. CITALOPRAM [Concomitant]
     Active Substance: CITALOPRAM HYDROBROMIDE
  8. HUMIRA [Concomitant]
     Active Substance: ADALIMUMAB
  9. FENOFIBRATE. [Concomitant]
     Active Substance: FENOFIBRATE
  10. LISINOPRIL. [Concomitant]
     Active Substance: LISINOPRIL
  11. FOLIC ACID. [Concomitant]
     Active Substance: FOLIC ACID

REACTIONS (2)
  - Skin irritation [Unknown]
  - Discomfort [Unknown]
